FAERS Safety Report 5401094-7 (Version None)
Quarter: 2007Q3

REPORT INFORMATION
  Report Type: 
  Country: None (occurrence: None)
  Receive Date: 20070731
  Receipt Date: 20070726
  Transmission Date: 20080115
  Serious: Yes (Other)
  Sender: FDA-Public Use
  Company Number: US-BRISTOL-MYERS SQUIBB COMPANY-13857974

PATIENT
  Age: 66 Year
  Sex: Female

DRUGS (5)
  1. ABATACEPT [Suspect]
     Indication: RHEUMATOID ARTHRITIS
     Route: 042
     Dates: start: 20040614
  2. RESTORIL [Concomitant]
     Dates: start: 19980101
  3. VICODIN [Concomitant]
     Dates: start: 20030801
  4. TOPROL-XL [Concomitant]
     Dates: start: 20030201
  5. BONIVA [Concomitant]
     Dates: start: 20060501

REACTIONS (1)
  - LUNG NEOPLASM [None]
